FAERS Safety Report 9471329 (Version 2)
Quarter: 2013Q3

REPORT INFORMATION
  Report Type: Spontaneous
  Country: US (occurrence: US)
  Receive Date: 20130822
  Receipt Date: 20130926
  Transmission Date: 20140515
  Serious: Yes (Other)
  Sender: FDA-Public Use
  Company Number: US-SHIONOGI, INC-2013000243

PATIENT
  Age: 83 Year
  Sex: Male

DRUGS (4)
  1. ROBINUL [Suspect]
     Indication: DROOLING
     Dosage: 2 MG, TID
     Route: 065
     Dates: start: 2012
  2. ROBINUL [Suspect]
     Indication: OFF LABEL USE
  3. RILUTEK [Concomitant]
     Indication: PRODUCT USED FOR UNKNOWN INDICATION
     Dosage: UNK
     Route: 065
  4. CHOLESTEROL [Concomitant]
     Indication: PRODUCT USED FOR UNKNOWN INDICATION
     Dosage: UNK

REACTIONS (4)
  - Urinary retention [Unknown]
  - Constipation [Unknown]
  - Off label use [Unknown]
  - Medication error [Unknown]
